FAERS Safety Report 8191914-8 (Version None)
Quarter: 2012Q1

REPORT INFORMATION
  Report Type: 
  Country: None (occurrence: None)
  Receive Date: 20120307
  Receipt Date: 20120227
  Transmission Date: 20120608
  Serious: Yes (Hospitalization, Other)
  Sender: FDA-Public Use
  Company Number: PHEH2008US05677

PATIENT
  Sex: Female

DRUGS (22)
  1. LUNESTA [Concomitant]
  2. SENOKOT [Concomitant]
     Route: 048
  3. TYLENOL-500 [Concomitant]
     Route: 048
  4. CRESTOR [Concomitant]
  5. MULTI-VITAMINS [Concomitant]
     Route: 048
  6. PRILOSEC [Concomitant]
     Dosage: 20 MG
     Route: 048
  7. AREDIA [Suspect]
     Indication: BONE LOSS
     Dates: start: 19970101, end: 20051001
  8. ACETAMINOPHEN [Concomitant]
  9. COLACE [Concomitant]
     Dosage: 200 MG, QHS
  10. LEVAQUIN [Concomitant]
  11. FEMARA [Concomitant]
     Dosage: 2.5 MG, QD
  12. ZOFRAN [Concomitant]
  13. LISINOPRIL [Concomitant]
  14. CARAFATE [Concomitant]
  15. ZOLOFT [Concomitant]
  16. CLONIDINE [Concomitant]
     Indication: BLOOD PRESSURE
     Dosage: 0.2 MG, Q12H
  17. CODEINE SULFATE [Concomitant]
  18. METOPROLOL SUCCINATE [Concomitant]
  19. ZOCOR [Concomitant]
     Dosage: 40 MG
     Route: 048
  20. FLOMAX [Concomitant]
  21. LORTAB [Concomitant]
  22. LOPRESSOR [Concomitant]
     Indication: BLOOD PRESSURE
     Dosage: 50 MG, Q12H

REACTIONS (86)
  - EXPOSED BONE IN JAW [None]
  - SPONDYLOLISTHESIS [None]
  - OROPHARYNGEAL PAIN [None]
  - POLLAKIURIA [None]
  - OSTEOPENIA [None]
  - METASTASES TO BONE [None]
  - DEPRESSION [None]
  - GAIT DISTURBANCE [None]
  - HYPERLIPIDAEMIA [None]
  - PERICARDIAL EFFUSION [None]
  - GROIN PAIN [None]
  - COUGH [None]
  - ABDOMINAL PAIN UPPER [None]
  - ABDOMINAL DISCOMFORT [None]
  - PAIN IN EXTREMITY [None]
  - MOUTH ULCERATION [None]
  - INJURY [None]
  - BACK PAIN [None]
  - RADICULITIS [None]
  - THORACIC VERTEBRAL FRACTURE [None]
  - BONE DISORDER [None]
  - VULVOVAGINAL DRYNESS [None]
  - ANXIETY [None]
  - LOOSE TOOTH [None]
  - RIB FRACTURE [None]
  - HEPATIC LESION [None]
  - FAECAL INCONTINENCE [None]
  - VOMITING [None]
  - HYPERAESTHESIA [None]
  - MUSCLE SPASMS [None]
  - VISUAL IMPAIRMENT [None]
  - NECK PAIN [None]
  - ARTHRALGIA [None]
  - PAIN [None]
  - INTERVERTEBRAL DISC DEGENERATION [None]
  - HEPATIC CALCIFICATION [None]
  - HEPATIC STEATOSIS [None]
  - HYPERCHOLESTEROLAEMIA [None]
  - VERTEBRAL FORAMINAL STENOSIS [None]
  - RENAL CYST [None]
  - NEUROPATHY PERIPHERAL [None]
  - HOT FLUSH [None]
  - SPINAL OSTEOARTHRITIS [None]
  - OSTEOARTHRITIS [None]
  - NEURALGIA [None]
  - ARTHRITIS [None]
  - HAEMATURIA [None]
  - CONTUSION [None]
  - DIARRHOEA [None]
  - GASTROOESOPHAGEAL REFLUX DISEASE [None]
  - SCOLIOSIS [None]
  - ORAL CANDIDIASIS [None]
  - OSTEOSCLEROSIS [None]
  - FOOT FRACTURE [None]
  - OESOPHAGITIS [None]
  - OESOPHAGEAL PAIN [None]
  - METASTASES TO ABDOMINAL CAVITY [None]
  - LUMBAR SPINE FLATTENING [None]
  - PULMONARY FIBROSIS [None]
  - ARTERIOSCLEROSIS [None]
  - RETCHING [None]
  - FATIGUE [None]
  - DECREASED APPETITE [None]
  - BREAST INFECTION [None]
  - PHYSICAL DISABILITY [None]
  - FACET JOINT SYNDROME [None]
  - INTERVERTEBRAL DISC PROTRUSION [None]
  - DYSPHAGIA [None]
  - RENAL DISORDER [None]
  - CALCULUS URETERIC [None]
  - MITRAL VALVE INCOMPETENCE [None]
  - TRICUSPID VALVE INCOMPETENCE [None]
  - HYPOAESTHESIA [None]
  - ARRHYTHMIA [None]
  - DYSPNOEA [None]
  - OSTEONECROSIS OF JAW [None]
  - FEMUR FRACTURE [None]
  - METASTASES TO SPINE [None]
  - CELLULITIS [None]
  - CERVICAL SPINAL STENOSIS [None]
  - CEREBRAL ATROPHY [None]
  - CONSTIPATION [None]
  - NAUSEA [None]
  - BRONCHITIS [None]
  - MUSCULAR WEAKNESS [None]
  - INGROWING NAIL [None]
